FAERS Safety Report 18568094 (Version 1)
Quarter: 2020Q4

REPORT INFORMATION
  Report Type: Other
  Country: CL (occurrence: CL)
  Receive Date: 20201202
  Receipt Date: 20201202
  Transmission Date: 20210114
  Serious: Yes (Death, Other)
  Sender: FDA-Public Use
  Company Number: CL-ROCHE-2711373

PATIENT

DRUGS (2)
  1. ATEZOLIZUMAB. [Suspect]
     Active Substance: ATEZOLIZUMAB
     Indication: HEPATOCELLULAR CARCINOMA
     Dosage: 6 CYCLES?FIRST - RECEPTION: 11-JUN-2020; INFUSION: 19-JUN-2020;?SECOND - RECEPTION: 07-JUL-2020; INF
     Route: 041
     Dates: start: 20200611
  2. BEVACIZUMAB. [Suspect]
     Active Substance: BEVACIZUMAB
     Indication: HEPATOCELLULAR CARCINOMA
     Dosage: 6 CYCLES
     Route: 065
     Dates: start: 20200611

REACTIONS (4)
  - Infection [Unknown]
  - Peritonitis bacterial [Unknown]
  - Liver injury [Fatal]
  - Sepsis [Unknown]
